FAERS Safety Report 16162542 (Version 1)
Quarter: 2019Q2

REPORT INFORMATION
  Report Type: Spontaneous
  Country: US (occurrence: US)
  Receive Date: 20190405
  Receipt Date: 20190405
  Transmission Date: 20190711
  Serious: No
  Sender: FDA-Public Use
  Company Number: US-JNJFOC-20190302259

PATIENT
  Sex: Male

DRUGS (10)
  1. TREMFYA [Suspect]
     Active Substance: GUSELKUMAB
     Indication: PSORIASIS
     Route: 058
     Dates: start: 201709
  2. SIMVASTATIN. [Concomitant]
     Active Substance: SIMVASTATIN
  3. CLONAZEPAM. [Concomitant]
     Active Substance: CLONAZEPAM
  4. CLOBETASOL [Concomitant]
     Active Substance: CLOBETASOL
  5. CLOPIDOGREL [Concomitant]
     Active Substance: CLOPIDOGREL BISULFATE
  6. METFORMIN [Concomitant]
     Active Substance: METFORMIN HYDROCHLORIDE
  7. TRIESENCE [Concomitant]
     Active Substance: TRIAMCINOLONE ACETONIDE
  8. CALCIPOTRIENE. [Concomitant]
     Active Substance: CALCIPOTRIENE
  9. JANUVIA [Concomitant]
     Active Substance: SITAGLIPTIN PHOSPHATE
  10. FENOFIBRATE. [Concomitant]
     Active Substance: FENOFIBRATE

REACTIONS (2)
  - Product dose omission [Recovered/Resolved]
  - Medication error [Recovered/Resolved]
